FAERS Safety Report 7135024-7 (Version None)
Quarter: 2010Q4

REPORT INFORMATION
  Report Type: 
  Country: None (occurrence: None)
  Receive Date: 20101203
  Receipt Date: 20101126
  Transmission Date: 20110411
  Serious: No
  Sender: FDA-Public Use
  Company Number: JP-ABBOTT-10P-087-0681679-00

PATIENT
  Sex: Male
  Weight: 80 kg

DRUGS (2)
  1. HUMIRA [Suspect]
     Indication: PSORIATIC ARTHROPATHY
     Route: 058
     Dates: start: 20100929, end: 20100929
  2. HUMIRA [Suspect]
     Route: 058
     Dates: start: 20101013

REACTIONS (4)
  - COUGH [None]
  - HEPATIC FUNCTION ABNORMAL [None]
  - NASOPHARYNGITIS [None]
  - UPPER RESPIRATORY TRACT INFLAMMATION [None]
